FAERS Safety Report 6367439-9 (Version None)
Quarter: 2009Q3

REPORT INFORMATION
  Report Type: 
  Country: None (occurrence: None)
  Receive Date: 20090921
  Receipt Date: 20090917
  Transmission Date: 20100115
  Serious: Yes (Other)
  Sender: FDA-Public Use
  Company Number: B0545350A

PATIENT
  Sex: Female

DRUGS (2)
  1. TYVERB [Suspect]
     Dosage: 1250MG PER DAY
     Route: 048
     Dates: start: 20081103
  2. XELODA [Suspect]
     Route: 048

REACTIONS (5)
  - ARRHYTHMIA [None]
  - CEREBELLAR SYNDROME [None]
  - CEREBRAL ARTERY EMBOLISM [None]
  - DERMATITIS ACNEIFORM [None]
  - VERTIGO [None]
